FAERS Safety Report 10119908 (Version 1)
Quarter: 2014Q2

REPORT INFORMATION
  Report Type: Spontaneous
  Country: US (occurrence: US)
  Receive Date: 20140425
  Receipt Date: 20140425
  Transmission Date: 20141212
  Serious: No
  Sender: FDA-Public Use
  Company Number: US-PFIZER INC-2014111655

PATIENT
  Age: 26 Year
  Sex: Male

DRUGS (8)
  1. GENOTROPIN [Suspect]
     Indication: PRADER-WILLI SYNDROME
     Dosage: 0.6 MG, DAILY
     Route: 058
  2. ABILIFY [Concomitant]
     Dosage: UNK
  3. DEPAKOTE [Concomitant]
     Dosage: UNK
  4. BUSPIRONE [Concomitant]
     Dosage: UNK
  5. CLONIDINE [Concomitant]
     Dosage: UNK
  6. MONTELUKAST [Concomitant]
     Dosage: UNK
  7. DESMOPRESSIN [Concomitant]
     Dosage: UNK
  8. N-ACETYLCYSTEINE [Concomitant]
     Dosage: UNK

REACTIONS (2)
  - Injection site pain [Recovered/Resolved]
  - Weight increased [Unknown]
